FAERS Safety Report 4199403 (Version 2)
Quarter: 2020Q3

REPORT INFORMATION
  Report Type: Report from Study
  Country: DE (occurrence: DE)
  Receive Date: 20040830
  Receipt Date: 20040901
  Transmission Date: 20201105
  Serious: Yes (Hospitalization, Other)
  Sender: FDA-Public Use
  Company Number: DE-JNJFOC-20040806175

PATIENT
  Sex: Male
  Weight: 45 kg

DRUGS (3)
  1. INFLIXIMAB [Suspect]
     Active Substance: INFLIXIMAB
     Indication: CROHN^S DISEASE
     Route: 042
  2. PLACEBO [Suspect]
     Active Substance: UNSPECIFIED INGREDIENT
     Indication: CROHN^S DISEASE
     Route: 042
  3. INFLIXIMAB [Suspect]
     Active Substance: INFLIXIMAB
     Route: 042

REACTIONS (7)
  - Bile duct cancer [None]
  - Haemobilia [None]
  - Haemoglobin decreased [None]
  - Platelet count decreased [None]
  - Haematocrit decreased [None]
  - Biliary tract disorder [None]
  - Cholangitis sclerosing [Unknown]
